FAERS Safety Report 20542439 (Version 1)
Quarter: 2022Q1

REPORT INFORMATION
  Report Type: Report from Study
  Country: IT (occurrence: IT)
  Receive Date: 20220302
  Receipt Date: 20220302
  Transmission Date: 20220424
  Serious: Yes (Hospitalization, Other)
  Sender: FDA-Public Use
  Company Number: None

PATIENT
  Age: 62 Year
  Sex: Female

DRUGS (7)
  1. LORAZEPAM [Suspect]
     Active Substance: LORAZEPAM
     Indication: Anxiolytic therapy
     Dosage: 10 MILLIGRAM, QD
     Route: 048
     Dates: start: 20211224, end: 20211224
  2. SIMVASTATIN [Suspect]
     Active Substance: SIMVASTATIN
     Indication: Hypercholesterolaemia
     Dosage: 100 MILLIGRAM, QD
     Route: 048
     Dates: start: 20211224, end: 20211224
  3. ALENDRONATE [Suspect]
     Active Substance: ALENDRONATE SODIUM
     Indication: Osteoporosis
     Dosage: 70 MILLIGRAM, QW
     Route: 048
     Dates: start: 20211224, end: 20211224
  4. CYMBALTA [Suspect]
     Active Substance: DULOXETINE HYDROCHLORIDE
     Indication: Antidepressant therapy
     Route: 048
     Dates: start: 20211224, end: 20211224
  5. TACHIPIRINA [Suspect]
     Active Substance: ACETAMINOPHEN
     Indication: Analgesic therapy
     Dosage: 3 GRAM, QD
     Dates: start: 20211224, end: 20211224
  6. LYRICA [Suspect]
     Active Substance: PREGABALIN
     Indication: Generalised anxiety disorder
     Dosage: 300 MILLIGRAM, QD
     Route: 048
     Dates: start: 20211224, end: 20211224
  7. AMLODIPINE BESYLATE\PERINDOPRIL ARGININE [Suspect]
     Active Substance: AMLODIPINE BESYLATE\PERINDOPRIL ARGININE
     Indication: Hypertension
     Dosage: 450 MILLIGRAM, QD
     Dates: start: 20211224, end: 20211224

REACTIONS (3)
  - Mood altered [Unknown]
  - Toxicity to various agents [Unknown]
  - Drug abuse [Unknown]

NARRATIVE: CASE EVENT DATE: 20211224
